FAERS Safety Report 11381540 (Version 1)
Quarter: 2015Q3

REPORT INFORMATION
  Report Type: Spontaneous
  Country: GB (occurrence: GB)
  Receive Date: 20150814
  Receipt Date: 20150814
  Transmission Date: 20151125
  Serious: Yes (Other)
  Sender: FDA-Public Use
  Company Number: GB-SHIRE-GB201509653

PATIENT
  Age: 13 Year
  Sex: Male
  Weight: 41.3 kg

DRUGS (3)
  1. ELVANSE [Suspect]
     Active Substance: LISDEXAMFETAMINE DIMESYLATE
     Indication: PRODUCT USED FOR UNKNOWN INDICATION
     Dosage: 30 MG, UNKNOWN
     Route: 048
     Dates: start: 20150715
  2. EQUASYM XL [Suspect]
     Active Substance: METHYLPHENIDATE HYDROCHLORIDE
     Dosage: 50 MG, UNKNOWN
     Route: 065
     Dates: start: 20150420, end: 20150714
  3. EQUASYM XL [Suspect]
     Active Substance: METHYLPHENIDATE HYDROCHLORIDE
     Indication: ATTENTION DEFICIT/HYPERACTIVITY DISORDER
     Dosage: 40 MG, UNKNOWN
     Route: 065
     Dates: start: 2014, end: 20150419

REACTIONS (2)
  - Intentional self-injury [Recovered/Resolved]
  - Anger [Recovered/Resolved]

NARRATIVE: CASE EVENT DATE: 20150715
